FAERS Safety Report 4397123-2 (Version None)
Quarter: 2004Q3

REPORT INFORMATION
  Report Type: 
  Country: None (occurrence: None)
  Receive Date: 20040714
  Receipt Date: 20040702
  Transmission Date: 20050211
  Serious: Yes (Congenital Anomaly)
  Sender: FDA-Public Use
  Company Number: US-BRISTOL-MYERS SQUIBB COMPANY-12633269

PATIENT
  Age: 1 Month
  Sex: Male
  Weight: 34 kg

DRUGS (6)
  1. ABILIFY [Suspect]
     Route: 064
     Dates: end: 20031211
  2. ATARAX [Concomitant]
     Route: 064
     Dates: start: 20031001
  3. BENADRYL [Concomitant]
     Route: 064
     Dates: start: 20031001
  4. CEPHALEXIN [Concomitant]
     Dosage: SECOND EXPOSURE IN SEPTEMBER OF 2003.
     Route: 064
     Dates: start: 20030701
  5. DERMACORT [Concomitant]
     Route: 064
     Dates: start: 20031001
  6. TERBUTALINE [Concomitant]
     Route: 064
     Dates: start: 20031211, end: 20031211

REACTIONS (1)
  - SYNOSTOSIS [None]
